FAERS Safety Report 9535395 (Version 2)
Quarter: 2013Q3

REPORT INFORMATION
  Report Type: Spontaneous
  Country: US (occurrence: US)
  Receive Date: 20130918
  Receipt Date: 20130918
  Transmission Date: 20140515
  Serious: Yes (Hospitalization, Other)
  Sender: FDA-Public Use
  Company Number: US-NAPPMUNDI-USA-2012-0089656

PATIENT
  Age: 69 Year
  Sex: Female
  Weight: 62.59 kg

DRUGS (9)
  1. DILAUDID INJECTION [Suspect]
     Indication: POSTOPERATIVE ANALGESIA
     Dosage: UNK
     Dates: start: 20120121, end: 20120121
  2. LISINOPRIL [Concomitant]
     Indication: HYPERTENSION
     Dosage: 10 MG, DAILY
  3. LANTUS [Concomitant]
     Indication: DIABETES MELLITUS
     Dosage: 6 UNIT, AM
     Dates: start: 201201
  4. NORVASC [Concomitant]
     Indication: PRODUCT USED FOR UNKNOWN INDICATION
     Dosage: 5 MG, DAILY
  5. ONGLYZA [Concomitant]
     Indication: DIABETES MELLITUS
     Dosage: 5 MG, DAILY
     Route: 048
     Dates: start: 2011
  6. VITAMIN B12                        /00056201/ [Concomitant]
     Indication: ANAEMIA
     Dosage: UNK, MONTHLY
     Route: 030
  7. POTASSIUM [Concomitant]
     Indication: PRODUCT USED FOR UNKNOWN INDICATION
  8. HUMIRA [Concomitant]
     Indication: CROHN^S DISEASE
     Dosage: 40 MG, EVERY OTHER WEEK
     Dates: start: 20081128
  9. GLUCOTROL [Concomitant]
     Indication: PRODUCT USED FOR UNKNOWN INDICATION
     Dosage: 5 MG, DAILY

REACTIONS (9)
  - Drug hypersensitivity [Unknown]
  - Pharyngeal oedema [Recovered/Resolved]
  - Rash generalised [Recovered/Resolved]
  - Swollen tongue [Recovered/Resolved]
  - Oedema mouth [Recovered/Resolved]
  - Dysarthria [Unknown]
  - Pruritus [Unknown]
  - Lip swelling [Unknown]
  - Unevaluable event [Unknown]
